FAERS Safety Report 15155734 (Version 1)
Quarter: 2018Q3

REPORT INFORMATION
  Report Type: Spontaneous
  Country: DE (occurrence: DE)
  Receive Date: 20180717
  Receipt Date: 20180717
  Transmission Date: 20181010
  Serious: Yes (Hospitalization)
  Sender: FDA-Public Use
  Company Number: PHHY2018DE045358

PATIENT
  Age: 75 Year
  Sex: Female

DRUGS (2)
  1. METOHEXAL [Concomitant]
     Active Substance: METOPROLOL SUCCINATE
     Indication: HYPERTENSION
     Dosage: 95 MG, QD
     Route: 065
  2. PENICILLIN SANDOZ [Suspect]
     Active Substance: PENICILLIN
     Indication: NASOPHARYNGITIS
     Dosage: UNK UNK, Q12H
     Route: 048
     Dates: start: 20180702, end: 20180706

REACTIONS (6)
  - Erythema [Not Recovered/Not Resolved]
  - Ear swelling [Not Recovered/Not Resolved]
  - Rash [Not Recovered/Not Resolved]
  - Hypersensitivity [Not Recovered/Not Resolved]
  - Urticaria [Not Recovered/Not Resolved]
  - Blood pressure increased [Not Recovered/Not Resolved]
